FAERS Safety Report 5308709-2 (Version None)
Quarter: 2007Q2

REPORT INFORMATION
  Report Type: 
  Country: None (occurrence: None)
  Receive Date: 20070426
  Receipt Date: 20070419
  Transmission Date: 20071010
  Serious: Yes (Life-Threatening, Hospitalization)
  Sender: FDA-Public Use
  Company Number: FR-GLAXOSMITHKLINE-B0467763A

PATIENT
  Age: 48 Year
  Sex: Female
  Weight: 63 kg

DRUGS (4)
  1. ZANTAC [Suspect]
     Route: 042
     Dates: start: 20060816, end: 20060816
  2. ZANTAC [Suspect]
     Dosage: 1UNIT SINGLE DOSE
     Route: 042
     Dates: start: 20060913, end: 20060913
  3. POLARAMINE [Suspect]
     Route: 042
     Dates: start: 20060816, end: 20060816
  4. POLARAMINE [Suspect]
     Dosage: 1UNIT SINGLE DOSE
     Route: 042
     Dates: start: 20060913, end: 20060913

REACTIONS (10)
  - ANAPHYLACTIC SHOCK [None]
  - BLOOD PRESSURE DECREASED [None]
  - CYANOSIS [None]
  - FACE OEDEMA [None]
  - GENERALISED ERYTHEMA [None]
  - LOSS OF CONSCIOUSNESS [None]
  - NAUSEA [None]
  - RESPIRATORY ARREST [None]
  - SENSE OF OPPRESSION [None]
  - SKIN TEST POSITIVE [None]
